FAERS Safety Report 20331449 (Version 1)
Quarter: 2022Q1

REPORT INFORMATION
  Report Type: Spontaneous
  Country: US (occurrence: US)
  Receive Date: 20220113
  Receipt Date: 20220113
  Transmission Date: 20220423
  Serious: Yes (Other)
  Sender: FDA-Public Use
  Company Number: US-drreddys-SPO/USA/22/0145627

PATIENT
  Age: 78 Year
  Sex: Female
  Weight: 72 kg

DRUGS (1)
  1. MOXIFLOXACIN [Suspect]
     Active Substance: MOXIFLOXACIN
     Indication: Chronic obstructive pulmonary disease
     Dates: start: 20220103, end: 20220104

REACTIONS (1)
  - Hallucination [Unknown]
